FAERS Safety Report 5910323-2 (Version None)
Quarter: 2008Q4

REPORT INFORMATION
  Report Type: 
  Country: None (occurrence: None)
  Receive Date: 20081007
  Receipt Date: 20080102
  Transmission Date: 20090506
  Serious: No
  Sender: FDA-Public Use
  Company Number: US-ASTRAZENECA-2007UW27071

PATIENT
  Age: 70 Year
  Sex: Female
  Weight: 77.1 kg

DRUGS (5)
  1. ARIMIDEX [Suspect]
     Indication: BREAST CANCER
     Route: 048
     Dates: start: 20030203, end: 20071121
  2. BLOOD PRESSURE MEDICATION [Concomitant]
  3. THYROID MEDICATION [Concomitant]
  4. MOBIC [Concomitant]
  5. BLADDER CONTROL MEDICATION [Concomitant]

REACTIONS (3)
  - ABDOMINAL PAIN [None]
  - BREAST SWELLING [None]
  - BREAST TENDERNESS [None]
